FAERS Safety Report 6256800-9 (Version None)
Quarter: 2009Q3

REPORT INFORMATION
  Report Type: 
  Country: None (occurrence: None)
  Receive Date: 20090701
  Receipt Date: 20090701
  Transmission Date: 20100115
  Serious: Yes (Disabling)
  Sender: FDA-Public Use
  Company Number: None

PATIENT
  Age: 13 Year
  Sex: Female
  Weight: 85.0041 kg

DRUGS (2)
  1. LAMOTRIGINE [Suspect]
     Indication: AFFECTIVE DISORDER
     Dosage: 25MG I QAM PO; 1 DOSE ONLY
     Route: 048
     Dates: start: 20090629, end: 20090629
  2. LAMOTRIGINE [Suspect]
     Indication: BIPOLAR DISORDER
     Dosage: 25MG I QAM PO; 1 DOSE ONLY
     Route: 048
     Dates: start: 20090629, end: 20090629

REACTIONS (2)
  - PRURITUS [None]
  - RASH [None]
